FAERS Safety Report 24646564 (Version 1)
Quarter: 2024Q4

REPORT INFORMATION
  Report Type: Spontaneous
  Country: CA (occurrence: CA)
  Receive Date: 20241121
  Receipt Date: 20241121
  Transmission Date: 20250115
  Serious: Yes (Life-Threatening, Other)
  Sender: CSL BEHRING
  Company Number: CA-BEH-2021129656

PATIENT
  Age: 51 Year
  Sex: Female

DRUGS (6)
  1. ALBUREX [Suspect]
     Active Substance: ALBUMIN HUMAN
     Indication: Post procedural haemorrhage
     Dosage: UNK
     Route: 042
  2. ACETAMINOPHEN [Concomitant]
     Active Substance: ACETAMINOPHEN
  3. BUPROPION [Concomitant]
     Active Substance: BUPROPION
     Route: 065
  4. ESCITALOPRAM [Concomitant]
     Active Substance: ESCITALOPRAM OXALATE
  5. HEPARIN SODIUM [Concomitant]
     Active Substance: HEPARIN SODIUM
     Route: 042
  6. METOPROLOL [Concomitant]
     Active Substance: METOPROLOL
     Route: 065

REACTIONS (7)
  - Hypersensitivity [Recovered/Resolved]
  - Blood pressure decreased [Recovered/Resolved]
  - Body temperature decreased [Recovered/Resolved]
  - Heart rate increased [Recovered/Resolved]
  - Hypotension [Recovered/Resolved]
  - Respiratory rate increased [Recovered/Resolved]
  - Urticaria [Recovered/Resolved]
